FAERS Safety Report 8777397 (Version 1)
Quarter: 2012Q4

REPORT INFORMATION
  Report Type: 
  Country: US (occurrence: US)
  Receive Date: 20120911
  Receipt Date: 20120911
  Transmission Date: 20130627
  Serious: No
  Sender: FDA-Public Use
  Company Number: US-TEVA-357679USA

PATIENT
  Sex: Male

DRUGS (3)
  1. NUVIGIL [Suspect]
     Indication: NARCOLEPSY
     Route: 048
  2. ADDERALL [Concomitant]
     Indication: NARCOLEPSY
     Dates: end: 201209
  3. VALIUM [Concomitant]
     Route: 048

REACTIONS (3)
  - Headache [Unknown]
  - Feeling abnormal [Unknown]
  - Apathy [Unknown]
